FAERS Safety Report 5794797-6 (Version None)
Quarter: 2008Q2

REPORT INFORMATION
  Report Type: 
  Country: None (occurrence: None)
  Receive Date: 20080627
  Receipt Date: 20080627
  Transmission Date: 20081010
  Serious: No
  Sender: FDA-Public Use
  Company Number: None

PATIENT
  Age: 78 Year
  Sex: Male
  Weight: 74.73 kg

DRUGS (1)
  1. MORPHINE [Suspect]
     Dosage: 4 MG TID
     Dates: start: 20080205, end: 20080205

REACTIONS (1)
  - DIZZINESS [None]
